FAERS Safety Report 5728039-4 (Version None)
Quarter: 2008Q2

REPORT INFORMATION
  Report Type: 
  Country: None (occurrence: None)
  Receive Date: 20080505
  Receipt Date: 20080423
  Transmission Date: 20081010
  Serious: Yes (Death)
  Sender: FDA-Public Use
  Company Number: CA-PFIZER INC-2008035905

PATIENT
  Age: 11 Year
  Sex: Male

DRUGS (1)
  1. VORICONAZOLE [Suspect]
     Indication: FUNGAL INFECTION
     Dosage: DAILY DOSE:4MG/KG-TEXT:4 MG/KG-FREQ:EVERY 12 HRS
     Dates: start: 20050505, end: 20050510

REACTIONS (4)
  - HYPOXIA [None]
  - MULTI-ORGAN FAILURE [None]
  - NEUTROPENIA [None]
  - PYREXIA [None]
